FAERS Safety Report 17244387 (Version 3)
Quarter: 2020Q3

REPORT INFORMATION
  Report Type: Report from Study
  Country: US (occurrence: US)
  Receive Date: 20200107
  Receipt Date: 20200909
  Transmission Date: 20201102
  Serious: Yes (Other)
  Sender: FDA-Public Use
  Company Number: US-BEH-2020111457

PATIENT
  Age: 70 Year
  Sex: Female
  Weight: 64 kg

DRUGS (9)
  1. BERIPLEX P/N [Suspect]
     Active Substance: COAGULATION FACTOR IX HUMAN\COAGULATION FACTOR VII HUMAN\COAGULATION FACTOR X HUMAN\PROTEIN C\PROTEIN S HUMAN\PROTHROMBIN
     Indication: PROCEDURAL HAEMORRHAGE
     Dosage: 1000 INTERNATIONAL UNIT (16 IU/KG)
     Route: 065
  2. HUMAN FIBRINOGEN FACTOR I (INN) [Suspect]
     Active Substance: FIBRINOGEN HUMAN
     Indication: AORTIC VALVE REPAIR
  3. HUMAN FIBRINOGEN FACTOR I (INN) [Suspect]
     Active Substance: FIBRINOGEN HUMAN
     Indication: AORTIC SURGERY
  4. BERIPLEX P/N [Suspect]
     Active Substance: COAGULATION FACTOR IX HUMAN\COAGULATION FACTOR VII HUMAN\COAGULATION FACTOR X HUMAN\PROTEIN C\PROTEIN S HUMAN\PROTHROMBIN
     Indication: AORTIC VALVE REPAIR
  5. BERIPLEX P/N [Suspect]
     Active Substance: COAGULATION FACTOR IX HUMAN\COAGULATION FACTOR VII HUMAN\COAGULATION FACTOR X HUMAN\PROTEIN C\PROTEIN S HUMAN\PROTHROMBIN
     Indication: AORTIC SURGERY
  6. HUMAN FIBRINOGEN FACTOR I (INN) [Suspect]
     Active Substance: FIBRINOGEN HUMAN
     Indication: PROCEDURAL HAEMORRHAGE
     Dosage: 1087 MILLIGRAM
     Route: 065
  7. BERIPLEX P/N [Suspect]
     Active Substance: COAGULATION FACTOR IX HUMAN\COAGULATION FACTOR VII HUMAN\COAGULATION FACTOR X HUMAN\PROTEIN C\PROTEIN S HUMAN\PROTHROMBIN
     Indication: AORTIC VALVE REPAIR
  8. BERIPLEX P/N [Suspect]
     Active Substance: COAGULATION FACTOR IX HUMAN\COAGULATION FACTOR VII HUMAN\COAGULATION FACTOR X HUMAN\PROTEIN C\PROTEIN S HUMAN\PROTHROMBIN
     Indication: AORTIC SURGERY
  9. BERIPLEX P/N [Suspect]
     Active Substance: COAGULATION FACTOR IX HUMAN\COAGULATION FACTOR VII HUMAN\COAGULATION FACTOR X HUMAN\PROTEIN C\PROTEIN S HUMAN\PROTHROMBIN
     Indication: PROCEDURAL HAEMORRHAGE
     Dosage: 1000 INTERNATIONAL UNIT (16 IU/KG)
     Route: 065

REACTIONS (1)
  - Deep vein thrombosis [Unknown]
